FAERS Safety Report 7228066-4 (Version None)
Quarter: 2011Q1

REPORT INFORMATION
  Report Type: 
  Country: None (occurrence: None)
  Receive Date: 20110114
  Receipt Date: 20100520
  Transmission Date: 20110831
  Serious: No
  Sender: FDA-Public Use
  Company Number: US-PFIZER INC-2010064068

PATIENT
  Age: 89 Year
  Sex: Male
  Weight: 68 kg

DRUGS (2)
  1. EMCYT [Suspect]
     Dosage: 140 MG, 3 TIMES DAILY FOR CONSECUTIVE 5 DAYS (ONCE EVERY MONTH)
     Route: 048
     Dates: start: 20090101
  2. ADALAT [Concomitant]
     Indication: HYPERTENSION
     Dosage: UNK

REACTIONS (1)
  - DIARRHOEA [None]
